FAERS Safety Report 9431461 (Version 1)
Quarter: 2013Q3

REPORT INFORMATION
  Report Type: Spontaneous
  Country: US (occurrence: US)
  Receive Date: 20130730
  Receipt Date: 20130730
  Transmission Date: 20140515
  Serious: Yes (Other)
  Sender: FDA-Public Use
  Company Number: US-TEVA-421558USA

PATIENT
  Sex: Female
  Weight: 71.73 kg

DRUGS (4)
  1. QVAR [Suspect]
     Indication: ASTHMA
     Route: 055
  2. SIMVASTATIN [Concomitant]
     Route: 048
  3. CLONIDINE [Concomitant]
     Indication: HYPERTENSION
  4. PROTONIX [Concomitant]
     Indication: GASTROOESOPHAGEAL REFLUX DISEASE
     Route: 048

REACTIONS (1)
  - Candida infection [Recovered/Resolved]
